FAERS Safety Report 15555628 (Version 1)
Quarter: 2018Q4

REPORT INFORMATION
  Report Type: Other
  Country: US (occurrence: US)
  Receive Date: 20181026
  Receipt Date: 20181026
  Transmission Date: 20190205
  Serious: Yes (Other)
  Sender: FDA-Public Use
  Company Number: US-WALMART-2058069

PATIENT

DRUGS (1)
  1. EPSOM SALT [Suspect]
     Active Substance: MAGNESIUM SULFATE

REACTIONS (1)
  - Urticaria [Recovered/Resolved]
